FAERS Safety Report 19676074 (Version 1)
Quarter: 2021Q3

REPORT INFORMATION
  Report Type: Spontaneous
  Country: FR (occurrence: FR)
  Receive Date: 20210809
  Receipt Date: 20210809
  Transmission Date: 20211014
  Serious: Yes (Disabling)
  Sender: FDA-Public Use
  Company Number: FR-TEVA-2021-FR-1939535

PATIENT
  Age: 26 Year
  Sex: Male
  Weight: 80 kg

DRUGS (3)
  1. MACROGOL BIOGARAN 10 G, POUDRE POUR SOLUTION BUVABLE EN SACHET?DOSE [Concomitant]
     Active Substance: POLYETHYLENE GLYCOL 4000
  2. DEPAKOTE [Concomitant]
     Active Substance: DIVALPROEX SODIUM
  3. LAMOTRIGINE TEVA 25 MG, COMPRIME DISPERSIBLE OU A CROQUER [Suspect]
     Active Substance: LAMOTRIGINE
     Indication: BIPOLAR DISORDER
     Dosage: 50 MILLIGRAM DAILY; 25MG 2X / DTHERAPY END DATE :ASKU
     Route: 048
     Dates: start: 20210710

REACTIONS (1)
  - Balance disorder [Recovered/Resolved]

NARRATIVE: CASE EVENT DATE: 20210716
